FAERS Safety Report 15543075 (Version 1)
Quarter: 2018Q4

REPORT INFORMATION
  Report Type: Spontaneous
  Country: ES (occurrence: ES)
  Receive Date: 20181023
  Receipt Date: 20181023
  Transmission Date: 20190205
  Serious: Yes (Hospitalization)
  Sender: FDA-Public Use
  Company Number: ES-PFIZER INC-2018429640

PATIENT
  Age: 86 Year
  Sex: Male

DRUGS (7)
  1. ADIRO [Concomitant]
     Active Substance: ASPIRIN
     Dosage: UNK
     Dates: start: 2018
  2. IRBESARTAN. [Concomitant]
     Active Substance: IRBESARTAN
     Dosage: UNK
     Dates: start: 2018
  3. ATORVASTATIN [Concomitant]
     Active Substance: ATORVASTATIN
     Dosage: UNK
     Dates: start: 2018
  4. PREDNISONE. [Concomitant]
     Active Substance: PREDNISONE
     Dosage: UNK
     Dates: start: 2018
  5. DOXYCYCLINE HYCLATE. [Suspect]
     Active Substance: DOXYCYCLINE HYCLATE
     Indication: PEMPHIGOID
     Dosage: 100 MG, ALTERNATE DAY
     Route: 048
     Dates: start: 20180222, end: 20180226
  6. OMEPRAZOLE. [Concomitant]
     Active Substance: OMEPRAZOLE
     Dosage: UNK
     Dates: start: 2018
  7. CROMATONBIC [Concomitant]
     Active Substance: VITAMINS
     Dosage: UNK
     Dates: start: 2018

REACTIONS (3)
  - Product use in unapproved indication [Recovered/Resolved]
  - Hepatic enzyme increased [Recovering/Resolving]
  - Prothrombin level abnormal [Recovering/Resolving]

NARRATIVE: CASE EVENT DATE: 20180222
